FAERS Safety Report 9096564 (Version 1)
Quarter: 2013Q1

REPORT INFORMATION
  Report Type: Spontaneous
  Country: IT (occurrence: IT)
  Receive Date: 20130211
  Receipt Date: 20130211
  Transmission Date: 20140127
  Serious: Yes (Other)
  Sender: FDA-Public Use
  Company Number: PHHY2013IT012770

PATIENT
  Sex: Female

DRUGS (3)
  1. ALLOPURINOL [Suspect]
     Dosage: 1 DF, (TOTAL DOSE)
     Route: 048
     Dates: start: 20120622, end: 20120622
  2. ANTIHYPERTENSIVE DRUGS [Concomitant]
  3. PROPAFENONE [Concomitant]

REACTIONS (4)
  - Hyperaesthesia [Recovering/Resolving]
  - Tremor [Recovering/Resolving]
  - Hypersensitivity [Recovering/Resolving]
  - Erythema [Recovering/Resolving]
